FAERS Safety Report 4429026-9 (Version None)
Quarter: 2004Q3

REPORT INFORMATION
  Report Type: 
  Country: None (occurrence: None)
  Receive Date: 20040726
  Receipt Date: 20040322
  Transmission Date: 20050211
  Serious: No
  Sender: FDA-Public Use
  Company Number: USA040361256

PATIENT
  Age: 65 Year
  Sex: Female
  Weight: 82 kg

DRUGS (3)
  1. FORTEO [Suspect]
     Indication: OSTEOPOROSIS
     Dates: start: 20040211
  2. PREDNISONE [Concomitant]
  3. AMPICILLIN [Concomitant]

REACTIONS (3)
  - BACK PAIN [None]
  - CHILLS [None]
  - NAUSEA [None]
